FAERS Safety Report 4294321-3 (Version None)
Quarter: 2004Q1

REPORT INFORMATION
  Report Type: 
  Country: None (occurrence: None)
  Receive Date: 20040211
  Receipt Date: 20030610
  Transmission Date: 20041129
  Serious: Yes (Death)
  Sender: FDA-Public Use
  Company Number: A0411637A

PATIENT
  Age: 61 Year
  Sex: Male

DRUGS (2)
  1. MELPHALAN INJECTION (MELPHALAN) [Suspect]
     Indication: MULTIPLE MYELOMA
     Dosage: 400 MG, INTRAVENOUS
     Route: 042
     Dates: start: 20030316, end: 20030316
  2. THALIDOMIDE (THALIDOMIDE) [Suspect]
     Indication: MULTIPLE MYELOMA
     Dosage: SE DOSAGE TEXT, ORAL
     Route: 048
     Dates: start: 20030108, end: 20030205

REACTIONS (4)
  - MICROCOCCUS INFECTION [None]
  - MUCOSAL INFLAMMATION [None]
  - SEPSIS [None]
  - STEM CELL TRANSPLANT [None]
